FAERS Safety Report 9871598 (Version 1)
Quarter: 2014Q1

REPORT INFORMATION
  Report Type: Report from Study
  Country: AR (occurrence: AR)
  Receive Date: 20140205
  Receipt Date: 20140205
  Transmission Date: 20141002
  Serious: Yes (Other)
  Sender: FDA-Public Use
  Company Number: AR-MYLANLABS-2014S1001734

PATIENT
  Age: 70 Year
  Sex: Male

DRUGS (6)
  1. ABIRATERONE [Suspect]
     Indication: PROSTATE CANCER METASTATIC
     Dosage: 1G DAILY
     Route: 065
  2. PREDNISOLONE [Suspect]
     Route: 065
  3. DEGARELIX [Concomitant]
     Route: 065
  4. ZOLEDRONIC ACID [Concomitant]
     Route: 065
  5. DALTEPARIN SODIUM [Concomitant]
     Route: 065
  6. PANTOPRAZOLE [Concomitant]
     Route: 065

REACTIONS (1)
  - Thrombocytopenia [Unknown]
